FAERS Safety Report 8563477-6 (Version None)
Quarter: 2012Q3

REPORT INFORMATION
  Report Type: 
  Country: None (occurrence: None)
  Receive Date: 20120802
  Receipt Date: 20120723
  Transmission Date: 20120928
  Serious: Yes (Hospitalization)
  Sender: FDA-Public Use
  Company Number: US-009507513-1207USA011274

PATIENT

DRUGS (1)
  1. ZOCOR [Suspect]
     Dosage: UNK
     Route: 048

REACTIONS (6)
  - TENDON RUPTURE [None]
  - TENDON PAIN [None]
  - ARTHRALGIA [None]
  - JOINT CREPITATION [None]
  - FALL [None]
  - WEIGHT BEARING DIFFICULTY [None]
